FAERS Safety Report 6558722-2 (Version None)
Quarter: 2010Q1

REPORT INFORMATION
  Report Type: 
  Country: None (occurrence: None)
  Receive Date: 20100129
  Receipt Date: 20100120
  Transmission Date: 20100710
  Serious: Yes (Death, Hospitalization, Other)
  Sender: FDA-Public Use
  Company Number: US-PFIZER INC-2009308670

PATIENT
  Sex: Female
  Weight: 53.5 kg

DRUGS (18)
  1. SUTENT [Suspect]
     Indication: RENAL CELL CARCINOMA
     Dosage: 50 MG, 1X/DAY
     Route: 048
     Dates: start: 20091116, end: 20091203
  2. ZOMETA [Concomitant]
     Dosage: UNK
     Dates: start: 20091026, end: 20091123
  3. MS CONTIN [Concomitant]
  4. VICODIN [Concomitant]
  5. PERCOCET [Concomitant]
  6. NEURONTIN [Concomitant]
  7. CLONAZEPAM [Concomitant]
  8. IMIPRAMINE [Concomitant]
  9. WELLBUTRIN [Concomitant]
  10. LEXAPRO [Concomitant]
  11. LOTREL [Concomitant]
  12. VYTORIN [Concomitant]
  13. MOBIC [Concomitant]
  14. NEXIUM [Concomitant]
  15. PREDNISONE [Concomitant]
  16. ARAVA [Concomitant]
  17. DEXAMETHASONE [Concomitant]
  18. FENTANYL [Concomitant]

REACTIONS (4)
  - BLOOD CREATININE INCREASED [None]
  - DEATH [None]
  - HYPOXIA [None]
  - THROMBOCYTOPENIA [None]
